FAERS Safety Report 6411427-0 (Version None)
Quarter: 2009Q4

REPORT INFORMATION
  Report Type: 
  Country: None (occurrence: None)
  Receive Date: 20091023
  Receipt Date: 20091015
  Transmission Date: 20100525
  Serious: Yes (Other)
  Sender: FDA-Public Use
  Company Number: US-ELI_LILLY_AND_COMPANY-US200910004065

PATIENT
  Sex: Female

DRUGS (1)
  1. BYETTA [Suspect]
     Dates: start: 20050901

REACTIONS (2)
  - PANCREATIC DISORDER [None]
  - RENAL DISORDER [None]
